FAERS Safety Report 11154991 (Version 2)
Quarter: 2015Q2

REPORT INFORMATION
  Report Type: Spontaneous
  Country: DE (occurrence: None)
  Receive Date: 20150529
  Receipt Date: 20150629
  Transmission Date: 20150821
  Serious: Yes (Other)
  Sender: FDA-Public Use
  Company Number: KAD201505-001320

PATIENT
  Age: 76 Year
  Sex: Male

DRUGS (5)
  1. VIEKIRAX (OMBITASVIR, PARITAPREVIR, RITONAVIR) [Suspect]
     Active Substance: OMBITASVIR\PARITAPREVIR\RITONAVIR
     Indication: HEPATITIS C
     Dosage: 1 IN 1 DAY, ORAL
     Route: 048
     Dates: start: 20150403
  2. LACTULOSE (LACTULOSE) [Concomitant]
     Active Substance: LACTULOSE
  3. RIBAVIRIN. [Suspect]
     Active Substance: RIBAVIRIN
     Indication: HEPATITIS C
     Route: 048
     Dates: start: 20150403
  4. SPIRONOLACTONE (SPIRONOLACTONE) [Concomitant]
     Active Substance: SPIRONOLACTONE
  5. EXVIERA [Suspect]
     Active Substance: DASABUVIR
     Indication: HEPATITIS C
     Route: 048
     Dates: start: 20150403

REACTIONS (3)
  - Blood bilirubin increased [None]
  - Renal function test abnormal [None]
  - Encephalopathy [None]

NARRATIVE: CASE EVENT DATE: 201504
